FAERS Safety Report 9665380 (Version 1)
Quarter: 2013Q4

REPORT INFORMATION
  Report Type: Spontaneous
  Country: US (occurrence: US)
  Receive Date: 20131104
  Receipt Date: 20131104
  Transmission Date: 20140711
  Serious: Yes (Hospitalization)
  Sender: FDA-Public Use
  Company Number: US-BRISTOL-MYERS SQUIBB COMPANY-19648120

PATIENT
  Age: 70 Year
  Sex: Male

DRUGS (14)
  1. ELIQUIS [Suspect]
  2. DIGOXIN [Suspect]
  3. AMIODARONE [Concomitant]
  4. CELEXA [Concomitant]
  5. COREG [Concomitant]
  6. SYNTHROID [Concomitant]
  7. LIPITOR [Concomitant]
  8. NIASPAN [Concomitant]
  9. PROTONIX [Concomitant]
  10. SINGULAIR [Concomitant]
  11. SPIRONOLACTONE [Concomitant]
  12. THIAMINE [Concomitant]
  13. FUROSEMIDE [Concomitant]
  14. ZYRTEC [Concomitant]

REACTIONS (1)
  - Toxicity to various agents [Unknown]
